FAERS Safety Report 11653159 (Version 1)
Quarter: 2015Q4

REPORT INFORMATION
  Report Type: Report from Study
  Country: JP (occurrence: JP)
  Receive Date: 20151022
  Receipt Date: 20151022
  Transmission Date: 20160304
  Serious: Yes (Life-Threatening)
  Sender: FDA-Public Use
  Company Number: JP-BAYER-2015-027608

PATIENT
  Age: 69 Year
  Sex: Female
  Weight: 66 kg

DRUGS (8)
  1. NEXAVAR [Suspect]
     Active Substance: SORAFENIB
     Indication: PAPILLARY THYROID CANCER
     Dosage: 600MG/DAY (200MG AT MORNING AND 400 AT NIGHT)
     Route: 048
     Dates: start: 20150216, end: 20150217
  2. HIRUDOID [Concomitant]
     Active Substance: GLYCOSAMINOGLYCANS
     Indication: PALMAR-PLANTAR ERYTHRODYSAESTHESIA SYNDROME
  3. NEXAVAR [Suspect]
     Active Substance: SORAFENIB
     Indication: PAPILLARY THYROID CANCER
     Dosage: 400 MG, BID
     Route: 048
     Dates: start: 20150121, end: 20150201
  4. HIRUDOID [Concomitant]
     Active Substance: GLYCOSAMINOGLYCANS
     Indication: DRUG TOXICITY PROPHYLAXIS
     Dosage: UNK
     Route: 061
     Dates: start: 20150121
  5. HIRUDOID [Concomitant]
     Active Substance: GLYCOSAMINOGLYCANS
     Indication: RASH
  6. THYRADIN S [Concomitant]
     Active Substance: LEVOTHYROXINE SODIUM
     Indication: PAPILLARY THYROID CANCER
     Dosage: 25 ?G, QD
     Route: 048
  7. ADALAT CC [Concomitant]
     Active Substance: NIFEDIPINE
     Indication: CARDIOVASCULAR EVENT PROPHYLAXIS
     Dosage: 20 MG, QD
     Route: 048
  8. HIRUDOID [Concomitant]
     Active Substance: GLYCOSAMINOGLYCANS
     Indication: PARONYCHIA

REACTIONS (6)
  - Rash [Recovering/Resolving]
  - Platelet count decreased [Recovered/Resolved]
  - Hypocalcaemia [Not Recovered/Not Resolved]
  - Paronychia [Recovered/Resolved]
  - Hepatic function abnormal [Recovered/Resolved]
  - Palmar-plantar erythrodysaesthesia syndrome [Recovering/Resolving]

NARRATIVE: CASE EVENT DATE: 20150124
